FAERS Safety Report 6996904-6 (Version None)
Quarter: 2010Q3

REPORT INFORMATION
  Report Type: 
  Country: None (occurrence: None)
  Receive Date: 20100918
  Receipt Date: 20090804
  Transmission Date: 20110219
  Serious: No
  Sender: FDA-Public Use
  Company Number: US-WYE-H10439509

PATIENT
  Sex: Female

DRUGS (2)
  1. EFFEXOR XR [Suspect]
     Dosage: UNKNOWN STARTING DOSE - TAPERED DOWN OVER SEVERAL MONTHS
     Dates: start: 20020101, end: 20090601
  2. EFFEXOR XR [Suspect]
     Dosage: 37.5 MG - FREQUENCY UNSPECIFIED
     Dates: start: 20090601, end: 20090701

REACTIONS (8)
  - ANXIETY [None]
  - DIARRHOEA [None]
  - DRUG WITHDRAWAL SYNDROME [None]
  - DYSPHORIA [None]
  - IRRITABILITY [None]
  - PARAESTHESIA [None]
  - POOR QUALITY SLEEP [None]
  - WEIGHT DECREASED [None]
